FAERS Safety Report 17298060 (Version 2)
Quarter: 2020Q1

REPORT INFORMATION
  Report Type: Spontaneous
  Country: JP (occurrence: JP)
  Receive Date: 20200122
  Receipt Date: 20200228
  Transmission Date: 20200409
  Serious: Yes (Death, Other)
  Sender: FDA-Public Use
  Company Number: JP-009507513-1906JPN001055J

PATIENT
  Age: 61 Year
  Sex: Male
  Weight: 63 kg

DRUGS (9)
  1. CISPLATIN. [Suspect]
     Active Substance: CISPLATIN
     Indication: NON-SMALL CELL LUNG CANCER
     Dosage: 75 MILLIGRAM/SQ. METER, Q3W
     Route: 041
     Dates: start: 20190522, end: 20190808
  2. CELECOX [Concomitant]
     Active Substance: CELECOXIB
     Dosage: 2 DOSAGE FORM
     Route: 048
     Dates: start: 20190521, end: 20190929
  3. KEYTRUDA [Suspect]
     Active Substance: PEMBROLIZUMAB
     Indication: NON-SMALL CELL LUNG CANCER
     Dosage: 200 MILLIGRAM, Q3W
     Route: 041
     Dates: start: 20190522, end: 20190808
  4. REBAMIPIDE [Concomitant]
     Active Substance: REBAMIPIDE
     Dosage: 3 DOSAGE FORM
     Route: 048
     Dates: start: 20190521, end: 20190929
  5. PEMETREXED DISODIUM [Suspect]
     Active Substance: PEMETREXED DISODIUM
     Indication: NON-SMALL CELL LUNG CANCER
     Dosage: 500 MILLIGRAM/SQ. METER, Q3W
     Route: 041
     Dates: start: 20190522, end: 20190808
  6. MIYA-BM [Concomitant]
     Active Substance: CLOSTRIDIUM BUTYRICUM SPORES STRAIN M-55
     Dosage: 6 DOSAGE FORM
     Route: 048
     Dates: start: 20190521, end: 20190929
  7. LOXOPROFEN [Concomitant]
     Active Substance: LOXOPROFEN
     Dosage: 3 DOSAGE FORM
     Route: 048
     Dates: start: 20190521, end: 20190929
  8. DEXTROMETHORPHAN [Concomitant]
     Active Substance: DEXTROMETHORPHAN
     Dosage: 8 DOSAGE FORM
     Route: 048
     Dates: start: 20190513, end: 20190929
  9. TAKECAB [Concomitant]
     Active Substance: VONOPRAZAN FUMURATE
     Dosage: 1 DOSAGE FORM
     Route: 048
     Dates: start: 20190521, end: 20190929

REACTIONS (3)
  - Malignant neoplasm progression [Unknown]
  - Eosinophilia [Recovering/Resolving]
  - Death [Fatal]

NARRATIVE: CASE EVENT DATE: 201906
